FAERS Safety Report 6517523-1 (Version None)
Quarter: 2009Q4

REPORT INFORMATION
  Report Type: 
  Country: None (occurrence: None)
  Receive Date: 20091224
  Receipt Date: 20091217
  Transmission Date: 20100525
  Serious: Yes (Hospitalization)
  Sender: FDA-Public Use
  Company Number: US-ELI_LILLY_AND_COMPANY-US200910003867

PATIENT
  Sex: Male
  Weight: 57.6 kg

DRUGS (19)
  1. PEMETREXED [Suspect]
     Indication: LUNG CANCER METASTATIC
     Dosage: 835 MG, OTHER
     Route: 042
     Dates: start: 20090930, end: 20090930
  2. PEMETREXED [Suspect]
     Dosage: 835 MG, OTHER
     Route: 042
     Dates: start: 20091021
  3. CETUXIMAB [Suspect]
     Indication: LUNG CANCER METASTATIC
     Dosage: 670 MG, OTHER
     Route: 042
     Dates: start: 20090930, end: 20090930
  4. CETUXIMAB [Suspect]
     Dosage: 670 MG, OTHER
     Route: 042
     Dates: start: 20091021
  5. CARBOPLATIN [Suspect]
     Indication: LUNG CANCER METASTATIC
     Dosage: 420 MG, OTHER
     Route: 042
     Dates: start: 20090930, end: 20090930
  6. CARBOPLATIN [Suspect]
     Dosage: 420 MG, OTHER
     Route: 042
     Dates: start: 20091021
  7. ASPIRIN [Concomitant]
     Dosage: 325 MG, DAILY (1/D)
     Route: 048
     Dates: start: 20010101
  8. POTASSIUM CHLORIDE [Concomitant]
     Indication: HYPOKALAEMIA
     Dosage: 20 MEQ, 2/D
     Route: 048
     Dates: start: 20010101
  9. AMLODIPINE [Concomitant]
     Indication: HYPERTENSION
     Dosage: 10 MG, DAILY (1/D)
     Route: 048
     Dates: start: 20010101
  10. B COMPLEX ELX [Concomitant]
     Indication: SUPPLEMENTATION THERAPY
     Dosage: UNK, DAILY (1/D)
     Dates: start: 20010101
  11. LISINOPRIL [Concomitant]
     Indication: HYPERTENSION
     Dosage: 20 MG, 2/D
     Route: 048
     Dates: start: 20010101
  12. MAG-OX [Concomitant]
     Indication: HYPOMAGNESAEMIA
     Dosage: 400 MG, 2/D
     Dates: start: 20010101
  13. PLAVIX [Concomitant]
     Indication: CORONARY ARTERY DISEASE
  14. CHLORTHALIDONE [Concomitant]
     Indication: HYPERTENSION
     Dosage: 12.5 MG, DAILY (1/D)
     Route: 048
     Dates: start: 20010101
  15. MEGACE [Concomitant]
     Dosage: 625 MG, DAILY (1/D)
     Route: 048
     Dates: start: 20090923
  16. PROMETHAZINE [Concomitant]
     Indication: VOMITING
     Dosage: 25 MG, DAILY (1/D)
     Route: 048
     Dates: start: 20090923
  17. BENADRYL [Concomitant]
     Indication: PREMEDICATION
     Dosage: 25 MG, DAILY (1/D)
     Route: 048
     Dates: start: 20090929
  18. DEXAMETHASONE TAB [Concomitant]
     Indication: PREMEDICATION
     Dosage: 4 MG, OTHER
     Route: 048
     Dates: start: 20090929
  19. ZANTAC [Concomitant]
     Indication: PREMEDICATION
     Dosage: 150 MG, DAILY (1/D)
     Route: 048
     Dates: start: 20090929

REACTIONS (3)
  - DEHYDRATION [None]
  - DYSPNOEA [None]
  - VOMITING [None]
